FAERS Safety Report 12120278 (Version 1)
Quarter: 2016Q1

REPORT INFORMATION
  Report Type: Spontaneous
  Country: CN (occurrence: CN)
  Receive Date: 20160226
  Receipt Date: 20160226
  Transmission Date: 20160526
  Serious: Yes (Death, Other)
  Sender: FDA-Public Use
  Company Number: CN-ROXANE LABORATORIES, INC.-2016-RO-00338RO

PATIENT
  Age: 43 Year
  Sex: Male

DRUGS (3)
  1. TACROLIMUS. [Suspect]
     Active Substance: TACROLIMUS
     Indication: LIVER TRANSPLANT
     Route: 065
  2. MYCOPHENOLATE MOFETIL (CAPSULES) USP [Suspect]
     Active Substance: MYCOPHENOLATE MOFETIL
     Indication: LIVER TRANSPLANT
     Route: 065
  3. CYCLOSPORINE. [Suspect]
     Active Substance: CYCLOSPORINE
     Indication: LIVER TRANSPLANT
     Route: 065

REACTIONS (2)
  - Death [Fatal]
  - Laryngeal cancer [Unknown]
